FAERS Safety Report 24261319 (Version 2)
Quarter: 2024Q3

REPORT INFORMATION
  Report Type: Spontaneous
  Country: US (occurrence: US)
  Receive Date: 20240829
  Receipt Date: 20240927
  Transmission Date: 20241017
  Serious: Yes (Hospitalization, Other)
  Sender: JUBILANT
  Company Number: US-JUBILANT PHARMA LTD-2024US001230

PATIENT
  Age: 70 Year
  Sex: Male

DRUGS (7)
  1. DONEPEZIL HYDROCHLORIDE [Suspect]
     Active Substance: DONEPEZIL HYDROCHLORIDE
     Indication: Cognitive disorder
     Dosage: 5 MG, ONCE PER DAY
     Route: 065
     Dates: start: 202304, end: 202305
  2. DONEPEZIL HYDROCHLORIDE [Suspect]
     Active Substance: DONEPEZIL HYDROCHLORIDE
     Dosage: 10 MG, ONCE PER DAY (INCREASED FROM 5 MG TO 10 MG DAILY )
     Route: 065
     Dates: start: 202305, end: 2023
  3. OLANZAPINE [Suspect]
     Active Substance: OLANZAPINE
     Indication: Schizoaffective disorder bipolar type
     Dosage: 15 MG, 2 TIMES PER DAY
     Route: 065
     Dates: start: 2022
  4. DIVALPROEX SODIUM [Suspect]
     Active Substance: DIVALPROEX SODIUM
     Indication: Schizoaffective disorder bipolar type
     Dosage: 250 MG, 2 TIMES PER DAY
     Route: 065
     Dates: start: 2022
  5. CLOZAPINE [Suspect]
     Active Substance: CLOZAPINE
     Indication: Cognitive disorder
     Dosage: 125 MG, ONCE PER DAY (AT NIGHT)
     Route: 065
     Dates: start: 202304, end: 2023
  6. OXCARBAZEPINE [Suspect]
     Active Substance: OXCARBAZEPINE
     Indication: Schizoaffective disorder bipolar type
     Dosage: 150 MG, 2 TIMES PER DAY
     Route: 065
  7. HALOPERIDOL [Concomitant]
     Active Substance: HALOPERIDOL
     Indication: Schizoaffective disorder bipolar type
     Dosage: 7.5 MG, 2 TIMES PER DAY
     Route: 065
     Dates: start: 202304, end: 2023

REACTIONS (5)
  - Delirium [Recovered/Resolved]
  - Cholinergic syndrome [Recovered/Resolved]
  - Fall [Recovered/Resolved]
  - Altered state of consciousness [Recovered/Resolved]
  - Sedation complication [Unknown]

NARRATIVE: CASE EVENT DATE: 20220101
